FAERS Safety Report 21433744 (Version 3)
Quarter: 2022Q4

REPORT INFORMATION
  Report Type: Spontaneous
  Country: US (occurrence: US)
  Receive Date: 20221010
  Receipt Date: 20221021
  Transmission Date: 20230112
  Serious: Yes (Other)
  Sender: FDA-Public Use
  Company Number: US-MLMSERVICE-20220920-3805569-1

PATIENT
  Age: 60 Year
  Sex: Male
  Weight: 81.6 kg

DRUGS (1)
  1. PREDNISONE [Suspect]
     Active Substance: PREDNISONE
     Indication: Inflammation
     Dosage: 20 MILLIGRAM, ONCE A DAY (AVERAGE DOSAGE, LOWEST DOSAGE )
     Route: 065
     Dates: start: 2011

REACTIONS (3)
  - Mycobacterium chelonae infection [Recovered/Resolved]
  - Cataract [Recovering/Resolving]
  - Steroid diabetes [Not Recovered/Not Resolved]

NARRATIVE: CASE EVENT DATE: 20150101
